FAERS Safety Report 9384954 (Version 1)
Quarter: 2013Q3

REPORT INFORMATION
  Report Type: Spontaneous
  Country: US (occurrence: US)
  Receive Date: 20130705
  Receipt Date: 20130705
  Transmission Date: 20140515
  Serious: No
  Sender: FDA-Public Use
  Company Number: US-GLAXOSMITHKLINE-A1017871A

PATIENT
  Age: 75 Year
  Sex: Female

DRUGS (5)
  1. BENLYSTA [Suspect]
     Indication: SYSTEMIC LUPUS ERYTHEMATOSUS
     Route: 042
     Dates: start: 20130227
  2. BYSTOLIC [Concomitant]
  3. HYZAAR [Concomitant]
  4. EFFEXOR [Concomitant]
  5. WELCHOL [Concomitant]

REACTIONS (6)
  - Feeling abnormal [Unknown]
  - Muscular weakness [Unknown]
  - Fatigue [Unknown]
  - Sensation of heaviness [Unknown]
  - Tremor [Unknown]
  - Alopecia [Unknown]
